FAERS Safety Report 5966294-6 (Version None)
Quarter: 2008Q4

REPORT INFORMATION
  Report Type: 
  Country: None (occurrence: None)
  Receive Date: 20081125
  Receipt Date: 20081114
  Transmission Date: 20090506
  Serious: Yes (Life-Threatening, Hospitalization)
  Sender: FDA-Public Use
  Company Number: JP-SANOFI-SYNTHELABO-A01200809303

PATIENT
  Sex: Female
  Weight: 52 kg

DRUGS (9)
  1. BLOPRESS [Suspect]
     Indication: HYPERTENSION
     Route: 048
     Dates: start: 20080621, end: 20080630
  2. AMLODIN [Concomitant]
     Indication: DRUG USE FOR UNKNOWN INDICATION
     Dosage: UNK
     Route: 048
     Dates: end: 20080630
  3. ASPIRIN [Concomitant]
     Indication: CEREBRAL INFARCTION
     Route: 048
  4. URINORM [Concomitant]
     Indication: HYPERTENSION
     Route: 048
     Dates: end: 20080630
  5. RABEPRAZOLE SODIUM [Suspect]
     Indication: DRUG USE FOR UNKNOWN INDICATION
     Dosage: UNK
     Route: 048
     Dates: start: 20080617, end: 20080630
  6. LOCHOL [Suspect]
     Indication: PROPHYLAXIS
     Route: 048
     Dates: start: 20080617, end: 20080630
  7. DEPAS [Suspect]
     Indication: INSOMNIA
     Route: 048
     Dates: start: 20080611, end: 20080630
  8. PLAVIX [Suspect]
     Indication: CEREBRAL INFARCTION
     Route: 048
     Dates: start: 20080615, end: 20080630
  9. MYSLEE [Suspect]
     Indication: INSOMNIA
     Route: 048
     Dates: start: 20080619, end: 20080630

REACTIONS (2)
  - ERYTHEMA MULTIFORME [None]
  - LIP EROSION [None]
